FAERS Safety Report 13088006 (Version 1)
Quarter: 2017Q1

REPORT INFORMATION
  Report Type: Spontaneous
  Country: US (occurrence: US)
  Receive Date: 20170105
  Receipt Date: 20170105
  Transmission Date: 20170428
  Serious: No
  Sender: FDA-Public Use
  Company Number: US-BAYER-2017-001950

PATIENT
  Age: 81 Year
  Sex: Male
  Weight: 125 kg

DRUGS (3)
  1. STATIN [Concomitant]
     Active Substance: UNSPECIFIED INGREDIENT
  2. ALEVE [Suspect]
     Active Substance: NAPROXEN SODIUM
     Indication: SPONDYLITIS
     Dosage: 2 DF, QD
     Route: 048
  3. ALEVE [Suspect]
     Active Substance: NAPROXEN SODIUM
     Indication: SPONDYLITIS
     Dosage: 2 DF, QD
     Route: 048

REACTIONS (1)
  - Product use issue [Unknown]
